FAERS Safety Report 4663876-9 (Version None)
Quarter: 2005Q3

REPORT INFORMATION
  Report Type: 
  Country: None (occurrence: None)
  Receive Date: 20050516
  Receipt Date: 20050509
  Transmission Date: 20060218
  Serious: Yes (Hospitalization, Other)
  Sender: FDA-Public Use
  Company Number: 30

PATIENT
  Age: 15 Year
  Sex: Female

DRUGS (3)
  1. MINOCYCLINE HCL [Suspect]
     Dosage: 75 MG BID
  2. LITHIUM [Concomitant]
  3. QUETIAPINE [Concomitant]

REACTIONS (10)
  - CSF PRESSURE INCREASED [None]
  - DRUG INEFFECTIVE [None]
  - EYE PAIN [None]
  - HEADACHE [None]
  - HYPOAESTHESIA [None]
  - MIDDLE INSOMNIA [None]
  - MUSCULOSKELETAL STIFFNESS [None]
  - PAPILLOEDEMA [None]
  - PARAESTHESIA [None]
  - VISION BLURRED [None]
